FAERS Safety Report 19344878 (Version 2)
Quarter: 2021Q4

REPORT INFORMATION
  Report Type: Spontaneous
  Country: US (occurrence: US)
  Receive Date: 20210530
  Receipt Date: 20211228
  Transmission Date: 20220304
  Serious: Yes (Other)
  Sender: FDA-Public Use
  Company Number: US-PURDUE-USA-2020-0196496

PATIENT
  Sex: Female

DRUGS (5)
  1. OXYCONTIN [Suspect]
     Active Substance: OXYCODONE HYDROCHLORIDE
     Indication: Arthritis
     Dosage: 80 MG, Q12H
     Route: 048
     Dates: start: 2008
  2. HYDROCODONE BITARTRATE AND ACETAMINOPHEN [Suspect]
     Active Substance: ACETAMINOPHEN\HYDROCODONE BITARTRATE
     Indication: Arthritis
     Dosage: UNKNOWN
     Route: 048
     Dates: start: 2008
  3. OXYCODONE HYDROCHLORIDE [Suspect]
     Active Substance: OXYCODONE HYDROCHLORIDE
     Indication: Arthritis
     Dosage: UNKNOWN
     Route: 048
     Dates: start: 2008
  4. ACETAMINOPHEN\OXYCODONE HYDROCHLORIDE [Suspect]
     Active Substance: ACETAMINOPHEN\OXYCODONE HYDROCHLORIDE
     Indication: Arthritis
     Dosage: UNKNOWN
     Route: 048
     Dates: start: 2008
  5. TRAMADOL [Suspect]
     Active Substance: TRAMADOL
     Indication: Arthritis
     Dosage: UNKNOWN
     Route: 048
     Dates: start: 2008

REACTIONS (3)
  - Drug dependence [Unknown]
  - Gait inability [Unknown]
  - Impaired self-care [Unknown]
